FAERS Safety Report 11206270 (Version 1)
Quarter: 2015Q2

REPORT INFORMATION
  Report Type: Report from Study
  Country: ES (occurrence: ES)
  Receive Date: 20150622
  Receipt Date: 20150622
  Transmission Date: 20150821
  Serious: Yes (Death, Other)
  Sender: FDA-Public Use
  Company Number: ES-JNJFOC-20141114071

PATIENT

DRUGS (4)
  1. SOFOSBUVIR [Suspect]
     Active Substance: SOFOSBUVIR
     Indication: CHRONIC HEPATITIS C
     Dosage: 1000-1200 MG PER DAY IN 24-48 WEEKS
     Route: 065
  2. RIBAVIRIN. [Suspect]
     Active Substance: RIBAVIRIN
     Indication: CHRONIC HEPATITIS C
     Dosage: 1000-1200 MG PER DAY IN 24-48 WEEKS
     Route: 065
     Dates: start: 20140922, end: 201411
  3. PEGASYS [Suspect]
     Active Substance: PEGINTERFERON ALFA-2A
     Indication: CHRONIC HEPATITIS C
     Route: 065
     Dates: start: 20140922, end: 201411
  4. SIMEPREVIR [Suspect]
     Active Substance: SIMEPREVIR
     Indication: CHRONIC HEPATITIS C
     Dosage: 12 WEEKS
     Route: 065
     Dates: start: 20140922, end: 201411

REACTIONS (37)
  - Hepatic failure [Fatal]
  - Neutropenia [Unknown]
  - Urinary tract infection [Unknown]
  - Cough [Unknown]
  - Tonsillitis [Unknown]
  - Decreased appetite [Unknown]
  - Rash [Unknown]
  - Dyspnoea [Unknown]
  - Blood bilirubin increased [Unknown]
  - Aphonia [Unknown]
  - Nausea [Unknown]
  - Vomiting [Unknown]
  - Diarrhoea [Unknown]
  - Drug intolerance [Unknown]
  - Photosensitivity reaction [Unknown]
  - Headache [Unknown]
  - Respiratory tract infection [Unknown]
  - Dry skin [Unknown]
  - Depression [Unknown]
  - Dry eye [Unknown]
  - Thrombocytopenia [Unknown]
  - Irritability [Unknown]
  - Asthenia [Unknown]
  - Influenza like illness [Unknown]
  - Abdominal pain upper [Unknown]
  - Myalgia [Unknown]
  - Drug ineffective [Unknown]
  - Anxiety [Unknown]
  - Anaemia [Unknown]
  - Tachycardia [Unknown]
  - Insomnia [Unknown]
  - Renal failure [Fatal]
  - Toothache [Unknown]
  - Abscess oral [Unknown]
  - Alopecia [Unknown]
  - Infection [Unknown]
  - Pruritus [Unknown]
